FAERS Safety Report 9095236 (Version 1)
Quarter: 2013Q1

REPORT INFORMATION
  Report Type: Spontaneous
  Country: US (occurrence: None)
  Receive Date: 20130123
  Receipt Date: 20130123
  Transmission Date: 20140127
  Serious: Yes (Other)
  Sender: FDA-Public Use
  Company Number: USW201301-000002

PATIENT
  Age: 74 Year
  Sex: Female
  Weight: 34 kg

DRUGS (1)
  1. APOKYN (APOMORPHINE HYDROCHLORIDE) (APOMORPHINE HYDROCHLORIDE) (APOMORPHINE HYDROCHLORIDE) [Suspect]
     Indication: PARKINSON^S DISEASE
     Dosage: 0.2 ML; SUBCUTANEOUS ON RIGHT THIGH
     Route: 058

REACTIONS (10)
  - Dyskinesia [None]
  - Fatigue [None]
  - Somnolence [None]
  - Fatigue [None]
  - Blood pressure increased [None]
  - Dysstasia [None]
  - Dyspnoea [None]
  - Speech disorder [None]
  - Posture abnormal [None]
  - Discomfort [None]
